FAERS Safety Report 11556885 (Version 1)
Quarter: 2015Q3

REPORT INFORMATION
  Report Type: Spontaneous
  Country: US (occurrence: US)
  Receive Date: 20150916
  Receipt Date: 20150916
  Transmission Date: 20151125
  Serious: No
  Sender: FDA-Public Use
  Company Number: US-ELI_LILLY_AND_COMPANY-US200806003456

PATIENT
  Sex: Female

DRUGS (3)
  1. FORTEO [Suspect]
     Active Substance: TERIPARATIDE
     Indication: OSTEOPOROSIS
     Dates: start: 20080611
  2. CALTRATE WITH VITAMIN D [Concomitant]
     Active Substance: CALCIUM CARBONATE\CHOLECALCIFEROL
     Dates: start: 20080612
  3. CENTRUM SILVER [Concomitant]
     Active Substance: VITAMINS
     Dates: start: 20080612

REACTIONS (6)
  - Nausea [Recovered/Resolved]
  - Malaise [Recovered/Resolved]
  - Arthralgia [Not Recovered/Not Resolved]
  - Anxiety [Not Recovered/Not Resolved]
  - Influenza like illness [Recovered/Resolved]
  - Pain in extremity [Not Recovered/Not Resolved]

NARRATIVE: CASE EVENT DATE: 20080611
